FAERS Safety Report 16001515 (Version 1)
Quarter: 2019Q1

REPORT INFORMATION
  Report Type: Spontaneous
  Country: CN (occurrence: CN)
  Receive Date: 20190225
  Receipt Date: 20190225
  Transmission Date: 20190418
  Serious: Yes (Other)
  Sender: FDA-Public Use
  Company Number: CN-MYLANLABS-2019M1016000

PATIENT
  Age: 80 Year
  Sex: Male

DRUGS (4)
  1. EPIRUBICIN [Suspect]
     Active Substance: EPIRUBICIN
     Indication: ACUTE MYELOID LEUKAEMIA
     Dosage: REDUCED-DOSE PRIMING CHEMOTHERAPY REGIMEN
     Route: 065
     Dates: start: 20171021
  2. INSULIN [Concomitant]
     Active Substance: INSULIN NOS
     Indication: TYPE 2 DIABETES MELLITUS
     Route: 065
  3. CYTARABINE. [Suspect]
     Active Substance: CYTARABINE
     Indication: ACUTE MYELOID LEUKAEMIA
     Dosage: REDUCED-DOSE PRIMING CHEMOTHERAPY REGIMEN
     Route: 065
     Dates: start: 20171021
  4. DECITABINE. [Suspect]
     Active Substance: DECITABINE
     Indication: ACUTE MYELOID LEUKAEMIA
     Route: 065
     Dates: start: 20171021

REACTIONS (4)
  - Atrial fibrillation [Unknown]
  - Cardiac dysfunction [Unknown]
  - Pneumonia [Unknown]
  - Bone marrow failure [Unknown]
